FAERS Safety Report 14779982 (Version 1)
Quarter: 2018Q2

REPORT INFORMATION
  Report Type: Spontaneous
  Country: US (occurrence: US)
  Receive Date: 20180419
  Receipt Date: 20180419
  Transmission Date: 20180711
  Serious: No
  Sender: FDA-Public Use
  Company Number: US-ST. RENATUS-2018STR00001

PATIENT
  Age: 34 Year
  Sex: Female

DRUGS (1)
  1. KOVANAZE [Suspect]
     Active Substance: OXYMETAZOLINE HYDROCHLORIDE\TETRACAINE HYDROCHLORIDE
     Indication: TOOTH REPAIR
     Dosage: 2 SPRAYS, LEFT NOSTRIL
     Route: 045
     Dates: start: 20180127, end: 20180127

REACTIONS (4)
  - Headache [Recovered/Resolved]
  - Lacrimation increased [Recovered/Resolved]
  - Ocular hyperaemia [Recovered/Resolved]
  - Instillation site irritation [Recovered/Resolved]

NARRATIVE: CASE EVENT DATE: 20180127
